FAERS Safety Report 21311368 (Version 1)
Quarter: 2022Q3

REPORT INFORMATION
  Report Type: Spontaneous
  Country: CA (occurrence: CA)
  Receive Date: 20220909
  Receipt Date: 20220909
  Transmission Date: 20221027
  Serious: Yes (Other)
  Sender: FDA-Public Use
  Company Number: CA-TEVA-2022-CA-2069893

PATIENT
  Sex: Male

DRUGS (2)
  1. DUTASTERIDE [Suspect]
     Active Substance: DUTASTERIDE
     Indication: Prostatic disorder
     Dosage: 500 MICROGRAM DAILY;
     Route: 048
     Dates: start: 2021
  2. DUTASTERIDE [Suspect]
     Active Substance: DUTASTERIDE
     Indication: Dysuria

REACTIONS (2)
  - Foreign body in throat [Unknown]
  - Oropharyngeal pain [Unknown]
